FAERS Safety Report 4561041-7 (Version None)
Quarter: 2005Q1

REPORT INFORMATION
  Report Type: 
  Country: None (occurrence: None)
  Receive Date: 20050126
  Receipt Date: 20040909
  Transmission Date: 20050727
  Serious: No
  Sender: FDA-Public Use
  Company Number: US-BRISTOL-MYERS SQUIBB COMPANY-12698262

PATIENT
  Age: 33 Year
  Sex: Female
  Weight: 70 kg

DRUGS (3)
  1. GLUCOPHAGE [Suspect]
     Indication: INSULIN RESISTANCE
     Dosage: INITIAL DOSING 500 MG ONCE DAILY FOR 1 WEEK, THEN UP TO 500 MG BID
  2. DEMULEN 1/35-21 [Concomitant]
  3. ALDACTONE [Concomitant]

REACTIONS (2)
  - DIARRHOEA [None]
  - NAUSEA [None]
